FAERS Safety Report 7392137-2 (Version None)
Quarter: 2011Q1

REPORT INFORMATION
  Report Type: 
  Country: None (occurrence: None)
  Receive Date: 20110330
  Receipt Date: 20110330
  Transmission Date: 20110831
  Serious: Yes (Death)
  Sender: FDA-Public Use
  Company Number: None

PATIENT
  Sex: Male
  Weight: 90.7194 kg

DRUGS (5)
  1. TRAZODONE HCL [Suspect]
     Dosage: 2 TAB @ BEDTIME
     Dates: start: 20100925, end: 20101006
  2. GABAPENTIN [Suspect]
     Dosage: 300 MG 1 CAP P.O. 3X DAY
     Route: 048
     Dates: start: 20100925, end: 20101005
  3. BUSPIRONE HCL [Suspect]
     Dosage: 1 TAB PO 3X DAY
     Route: 048
     Dates: start: 20091022, end: 20101120
  4. HYDROXYZINE PAMOATE [Suspect]
     Dosage: 1 TAB PO 2X D AS NEEDED
     Route: 048
     Dates: start: 20101021
  5. MIRTAZAPINE [Suspect]
     Dosage: 30 MG 1 TAB P.O. BEDTIME
     Route: 048
     Dates: start: 20091022, end: 20101120

REACTIONS (3)
  - CARDIAC FAILURE CONGESTIVE [None]
  - IRRITABLE BOWEL SYNDROME [None]
  - WEIGHT DECREASED [None]
